FAERS Safety Report 5191151-5 (Version None)
Quarter: 2006Q4

REPORT INFORMATION
  Report Type: 
  Country: None (occurrence: None)
  Receive Date: 20061226
  Receipt Date: 20061218
  Transmission Date: 20070319
  Serious: Yes (Disabling)
  Sender: FDA-Public Use
  Company Number: 2006SE06804

PATIENT
  Sex: Male

DRUGS (1)
  1. SELO-ZOK [Suspect]
     Indication: HYPERTENSION
     Route: 048
     Dates: start: 20040130, end: 20060330

REACTIONS (1)
  - POLYNEUROPATHY [None]
